FAERS Safety Report 4274248-3 (Version None)
Quarter: 2004Q1

REPORT INFORMATION
  Report Type: 
  Country: None (occurrence: None)
  Receive Date: 20040115
  Receipt Date: 20040106
  Transmission Date: 20041129
  Serious: Yes (Hospitalization)
  Sender: FDA-Public Use
  Company Number: 2004000935

PATIENT
  Age: 60 Year
  Sex: Male

DRUGS (4)
  1. ZYRTEC [Suspect]
     Indication: RASH MORBILLIFORM
     Dosage: 10 MG (DAILY), ORAL
     Route: 048
     Dates: start: 20031104, end: 20031107
  2. MALARONE [Suspect]
     Indication: MALARIA PROPHYLAXIS
     Dosage: ORAL
     Route: 048
     Dates: start: 20031023, end: 20031104
  3. ACETAMINOPHEN [Suspect]
     Indication: RASH MORBILLIFORM
     Dosage: 500 MG, ORAL
     Route: 048
     Dates: start: 20031031, end: 20031031
  4. ALFUZOSIN [Suspect]
     Indication: BENIGN PROSTATIC HYPERPLASIA
     Dosage: ORAL
     Dates: start: 20031023, end: 20031114

REACTIONS (15)
  - DYSAESTHESIA [None]
  - ENCEPHALITIS VIRAL [None]
  - EOSINOPHILIA [None]
  - FACIAL PALSY [None]
  - HERPES VIRUS INFECTION [None]
  - HOT FLUSH [None]
  - HYPERHIDROSIS [None]
  - LEUKOENCEPHALOPATHY [None]
  - LYME DISEASE [None]
  - MENINGISM [None]
  - NERVE ROOT LESION [None]
  - NERVOUS SYSTEM DISORDER [None]
  - PARAESTHESIA [None]
  - RASH MORBILLIFORM [None]
  - SKIN DESQUAMATION [None]
